FAERS Safety Report 18778129 (Version 1)
Quarter: 2021Q1

REPORT INFORMATION
  Report Type: Spontaneous
  Country: US (occurrence: US)
  Receive Date: 20210123
  Receipt Date: 20210123
  Transmission Date: 20210419
  Serious: Yes (Other)
  Sender: FDA-Public Use
  Company Number: US-CURRAX PHARMACEUTICALS LLC-US-2021CUR000005

PATIENT
  Sex: Male

DRUGS (2)
  1. POLY?IRON 150 MG (IRON) [Suspect]
     Active Substance: DIETARY SUPPLEMENT
     Indication: PRODUCT USED FOR UNKNOWN INDICATION
     Dosage: UNK
     Route: 048
  2. IRON [Suspect]
     Active Substance: IRON

REACTIONS (1)
  - Parkinson^s disease [Not Recovered/Not Resolved]
